FAERS Safety Report 21210012 (Version 1)
Quarter: 2022Q3

REPORT INFORMATION
  Report Type: Report from Study
  Country: US (occurrence: US)
  Receive Date: 20220813
  Receipt Date: 20220813
  Transmission Date: 20221027
  Serious: Yes (Hospitalization)
  Sender: FDA-Public Use
  Company Number: US-ABBVIE-22K-163-4387564-00

PATIENT
  Sex: Male

DRUGS (1)
  1. VENCLEXTA [Suspect]
     Active Substance: VENETOCLAX
     Indication: Acute myeloid leukaemia
     Route: 048
     Dates: start: 20210606

REACTIONS (5)
  - Hypotension [Unknown]
  - Malaise [Unknown]
  - Restless legs syndrome [Unknown]
  - Cardioactive drug level increased [Unknown]
  - Blood creatinine increased [Unknown]
